FAERS Safety Report 6219987-X (Version None)
Quarter: 2009Q2

REPORT INFORMATION
  Report Type: 
  Country: None (occurrence: None)
  Receive Date: 20090609
  Receipt Date: 20081203
  Transmission Date: 20091009
  Serious: Yes (Death)
  Sender: FDA-Public Use
  Company Number: ES-CELGENEUS-144-CCAZA-08120258

PATIENT
  Age: 70 Year
  Sex: Female

DRUGS (1)
  1. AZACITIDINE INJECTABLE [Suspect]
     Indication: MYELODYSPLASTIC SYNDROME
     Dosage: 65% OF  75MG/M2
     Route: 058
     Dates: start: 20080101, end: 20080101

REACTIONS (1)
  - METASTATIC NEOPLASM [None]
